FAERS Safety Report 17911653 (Version 3)
Quarter: 2022Q4

REPORT INFORMATION
  Report Type: Spontaneous
  Country: US (occurrence: US)
  Receive Date: 20200618
  Receipt Date: 20221020
  Transmission Date: 20230113
  Serious: Yes (Hospitalization)
  Sender: FDA-Public Use
  Company Number: US-PFIZER INC-2020234617

PATIENT
  Age: 74 Year
  Sex: Male
  Weight: 87.54 kg

DRUGS (7)
  1. CHANTIX [Suspect]
     Active Substance: VARENICLINE TARTRATE
     Indication: Tobacco user
     Dosage: UNK
     Dates: start: 2014
  2. AMLODIPINE [Concomitant]
     Active Substance: AMLODIPINE BESYLATE
     Indication: Blood pressure abnormal
     Dosage: 5 MG, 1X/DAY
     Route: 048
     Dates: start: 2011
  3. AMLODIPINE [Concomitant]
     Active Substance: AMLODIPINE BESYLATE
     Indication: Heart rate increased
  4. CITALOPRAM [Concomitant]
     Active Substance: CITALOPRAM HYDROBROMIDE
     Indication: Anxiety
     Dosage: 20 MG, 1X/DAY
     Route: 048
     Dates: start: 2016
  5. CLONAZEPAM [Concomitant]
     Active Substance: CLONAZEPAM
     Indication: Sleep apnoea syndrome
     Dosage: 0.5 MG (TAKE 1/2 TAB AND 1 AND 1/2 IN THE EVENING)
     Route: 048
     Dates: start: 1990
  6. METOPROLOL [Concomitant]
     Active Substance: METOPROLOL
     Indication: Blood pressure abnormal
     Dosage: 25 MG, 2X/DAY
     Route: 048
     Dates: start: 2012
  7. TAMSULOSIN [Concomitant]
     Active Substance: TAMSULOSIN
     Indication: Prostate infection
     Dosage: 0.4 MG, DAILY
     Route: 048
     Dates: start: 2017

REACTIONS (2)
  - Nightmare [Recovered/Resolved]
  - Nausea [Recovered/Resolved]
